FAERS Safety Report 10007191 (Version 1)
Quarter: 2014Q1

REPORT INFORMATION
  Report Type: Spontaneous
  Country: US (occurrence: US)
  Receive Date: 20140313
  Receipt Date: 20140313
  Transmission Date: 20141002
  Serious: No
  Sender: FDA-Public Use
  Company Number: US-PFIZER INC-2014073340

PATIENT
  Age: 69 Year
  Sex: Male
  Weight: 85.3 kg

DRUGS (6)
  1. LYRICA [Suspect]
     Indication: BACK PAIN
     Dosage: 50 MG, 1X/DAY
     Dates: start: 20140221
  2. LYRICA [Suspect]
     Indication: NERVE COMPRESSION
  3. LYRICA [Suspect]
     Indication: NEUROPATHY PERIPHERAL
  4. FLOMAX [Concomitant]
     Indication: BENIGN PROSTATIC HYPERPLASIA
     Dosage: 0.4 MG, 2X/DAY
  5. ATIVAN [Concomitant]
     Dosage: 0.5 MG, 2X/DAY
  6. PRILOSEC [Concomitant]
     Indication: GASTROOESOPHAGEAL REFLUX DISEASE
     Dosage: 40 MG, 2X/DAY

REACTIONS (3)
  - Dizziness [Unknown]
  - Alopecia [Unknown]
  - Asthenia [Unknown]
